FAERS Safety Report 21803301 (Version 4)
Quarter: 2023Q1

REPORT INFORMATION
  Report Type: Spontaneous
  Country: US (occurrence: US)
  Receive Date: 20230101
  Receipt Date: 20230314
  Transmission Date: 20230418
  Serious: No
  Sender: FDA-Public Use
  Company Number: US-BAUSCHBL-2022BNL003276

PATIENT
  Age: 55 Year
  Sex: Female
  Weight: 61.290 kg

DRUGS (3)
  1. LUMIFY [Suspect]
     Active Substance: BRIMONIDINE TARTRATE
     Indication: Ocular hyperaemia
     Dosage: START DATE IN FIRST WEEK OF NOV/2022, STOP DATE IN SECOND WEEK OF NOV/2022
     Route: 047
     Dates: start: 202211, end: 202211
  2. LUMIFY [Suspect]
     Active Substance: BRIMONIDINE TARTRATE
     Dosage: START DATE IN FIRST WEEK OF NOV/2022, STOP DATE IN SECOND WEEK OF NOV/2022
     Route: 047
     Dates: start: 202211, end: 202211
  3. SERTRALINE [Concomitant]
     Active Substance: SERTRALINE HYDROCHLORIDE
     Indication: Anxiety
     Dosage: FROM 5 YEARS

REACTIONS (1)
  - Hordeolum [Not Recovered/Not Resolved]

NARRATIVE: CASE EVENT DATE: 20221117
